FAERS Safety Report 24961344 (Version 1)
Quarter: 2025Q1

REPORT INFORMATION
  Report Type: Spontaneous
  Country: JP (occurrence: JP)
  Receive Date: 20250212
  Receipt Date: 20250212
  Transmission Date: 20250408
  Serious: Yes (Other)
  Sender: CHATTEM
  Company Number: JP-SA-2025SA038863

PATIENT
  Sex: Female

DRUGS (1)
  1. FEXOFENADINE HYDROCHLORIDE [Suspect]
     Active Substance: FEXOFENADINE HYDROCHLORIDE
     Indication: Product used for unknown indication
     Route: 048
     Dates: start: 202412

REACTIONS (2)
  - Glaucoma [Unknown]
  - Cataract [Unknown]

NARRATIVE: CASE EVENT DATE: 20250115
